FAERS Safety Report 13581742 (Version 1)
Quarter: 2017Q2

REPORT INFORMATION
  Report Type: Spontaneous
  Country: US (occurrence: US)
  Receive Date: 20170525
  Receipt Date: 20170525
  Transmission Date: 20170830
  Serious: No
  Sender: FDA-Public Use
  Company Number: US-BAYER-2017-095453

PATIENT
  Age: 64 Year
  Sex: Female

DRUGS (2)
  1. NASACORT [Concomitant]
     Active Substance: TRIAMCINOLONE ACETONIDE
  2. CLARITIN [Suspect]
     Active Substance: LORATADINE
     Indication: VIRAL INFECTION
     Dosage: 2 DF, QD
     Dates: start: 20170517, end: 20170517

REACTIONS (3)
  - Product use in unapproved indication [None]
  - Somnolence [Recovered/Resolved]
  - Product use issue [Recovered/Resolved]

NARRATIVE: CASE EVENT DATE: 20170517
